FAERS Safety Report 24988344 (Version 1)
Quarter: 2025Q1

REPORT INFORMATION
  Report Type: Spontaneous
  Country: US (occurrence: US)
  Receive Date: 20250220
  Receipt Date: 20250220
  Transmission Date: 20250408
  Serious: No
  Sender: CHURCH & DWIGHT
  Company Number: US-ChurchDwight-2025-CDW-00235

PATIENT
  Age: 31 Year
  Sex: Female

DRUGS (1)
  1. ZICAM COLD REMEDY NASAL SWABS (HOMEOPATHICS) [Suspect]
     Active Substance: HOMEOPATHICS\ZINC ACETATE\ZINC GLUCONATE
     Indication: Nasopharyngitis
     Route: 045
     Dates: start: 20241231, end: 20250101

REACTIONS (1)
  - Anosmia [Recovered/Resolved]

NARRATIVE: CASE EVENT DATE: 20241231
